FAERS Safety Report 5430754-7 (Version None)
Quarter: 2007Q3

REPORT INFORMATION
  Report Type: 
  Country: None (occurrence: None)
  Receive Date: 20070830
  Receipt Date: 20061113
  Transmission Date: 20080115
  Serious: No
  Sender: FDA-Public Use
  Company Number: A0627021A

PATIENT
  Sex: Female

DRUGS (2)
  1. WELLBUTRIN XL [Suspect]
     Indication: DRUG USE FOR UNKNOWN INDICATION
     Dosage: 300MG TWICE PER DAY
     Route: 048
  2. ZOLOFT [Concomitant]

REACTIONS (7)
  - DIARRHOEA [None]
  - DRY MOUTH [None]
  - DYSGEUSIA [None]
  - INSOMNIA [None]
  - OVERDOSE [None]
  - STOMACH DISCOMFORT [None]
  - TREMOR [None]
